FAERS Safety Report 13951444 (Version 1)
Quarter: 2017Q3

REPORT INFORMATION
  Report Type: Spontaneous
  Country: JP (occurrence: JP)
  Receive Date: 20170908
  Receipt Date: 20170908
  Transmission Date: 20171128
  Serious: Yes (Other)
  Sender: FDA-Public Use
  Company Number: JP-PFIZER INC-2017385020

PATIENT
  Age: 81 Year
  Sex: Male

DRUGS (2)
  1. LYRICA [Suspect]
     Active Substance: PREGABALIN
     Indication: NEURALGIA
     Dosage: 3 DF, DAILY
     Route: 048
  2. LYRICA [Suspect]
     Active Substance: PREGABALIN
     Indication: PAIN

REACTIONS (3)
  - Diabetes mellitus [Unknown]
  - Blood creatine phosphokinase increased [Unknown]
  - Rhabdomyolysis [Unknown]
